FAERS Safety Report 8516275-3 (Version None)
Quarter: 2012Q3

REPORT INFORMATION
  Report Type: 
  Country: None (occurrence: None)
  Receive Date: 20120717
  Receipt Date: 20120712
  Transmission Date: 20120928
  Serious: Yes (Hospitalization, Other)
  Sender: FDA-Public Use
  Company Number: US-ABBOTT-12P-163-0951627-00

PATIENT
  Sex: Female
  Weight: 56.75 kg

DRUGS (3)
  1. HUMIRA [Suspect]
     Indication: CROHN'S DISEASE
     Route: 058
     Dates: start: 20100201, end: 20100801
  2. HUMIRA [Suspect]
     Route: 058
     Dates: start: 20120101
  3. PENTASA [Concomitant]
     Indication: CROHN'S DISEASE
     Dates: start: 20090101

REACTIONS (1)
  - CROHN'S DISEASE [None]
